FAERS Safety Report 5155109-4 (Version None)
Quarter: 2006Q4

REPORT INFORMATION
  Report Type: 
  Country: None (occurrence: None)
  Receive Date: 20061121
  Receipt Date: 20061114
  Transmission Date: 20070319
  Serious: Yes (Hospitalization)
  Sender: FDA-Public Use
  Company Number: US-ROCHE-471265

PATIENT
  Age: 60 Year
  Sex: Female

DRUGS (3)
  1. CAPECITABINE [Suspect]
     Dosage: ON DAYS 1-8 EVERY TWO WEEKS.
     Route: 048
     Dates: start: 20061031
  2. BEVACIZUMAB [Suspect]
     Dosage: ON DAY 1 EVERY 2 WEEKS.
     Route: 042
     Dates: start: 20061031
  3. OXALIPLATIN [Suspect]
     Dosage: ON DAY 1 EVERY 2 WEEKS.
     Route: 042
     Dates: start: 20061031

REACTIONS (1)
  - MUCOSAL INFLAMMATION [None]
